FAERS Safety Report 6336900-5 (Version None)
Quarter: 2009Q3

REPORT INFORMATION
  Report Type: 
  Country: None (occurrence: None)
  Receive Date: 20090901
  Receipt Date: 20090827
  Transmission Date: 20100115
  Serious: Yes (Death, Hospitalization)
  Sender: FDA-Public Use
  Company Number: PHHY2009MX35094

PATIENT
  Age: 90 Year
  Sex: Male

DRUGS (1)
  1. EXELON [Suspect]
     Indication: DEMENTIA ALZHEIMER'S TYPE
     Dosage: 01 PATCH (10 CM2) PER DAY
     Route: 062
     Dates: start: 20080901, end: 20081207

REACTIONS (3)
  - CEREBRAL INFARCTION [None]
  - PNEUMONIA [None]
  - RESPIRATORY ARREST [None]
